FAERS Safety Report 5468388-0 (Version None)
Quarter: 2007Q3

REPORT INFORMATION
  Report Type: 
  Country: None (occurrence: None)
  Receive Date: 20070924
  Receipt Date: 20070910
  Transmission Date: 20080115
  Serious: Yes (Life-Threatening, Hospitalization)
  Sender: FDA-Public Use
  Company Number: DSA_30613_2007

PATIENT
  Sex: Female

DRUGS (4)
  1. LORAZEPAM [Suspect]
     Dosage: (NOT THE PRESCRIBED AMOUNT ORAL)
     Route: 048
     Dates: start: 20070907, end: 20070907
  2. DALMADORM (DALMADORM - FLURAZEPAM HYDROCHLORIDE) (NOT SPECIFIED) [Suspect]
     Dosage: (ORAL)
     Route: 048
     Dates: start: 20070907, end: 20070907
  3. MIRTAZAPINE [Suspect]
     Dosage: (ORAL)
     Route: 048
     Dates: start: 20070907, end: 20070907
  4. PLANTAGO MAJOR (RIBWORT FLUID) [Suspect]
     Dosage: (ORAL)
     Route: 048
     Dates: start: 20070907, end: 20070907

REACTIONS (3)
  - ASPIRATION [None]
  - MULTIPLE DRUG OVERDOSE [None]
  - SUICIDE ATTEMPT [None]
